FAERS Safety Report 19700282 (Version 1)
Quarter: 2021Q3

REPORT INFORMATION
  Report Type: Spontaneous
  Country: CN (occurrence: CN)
  Receive Date: 20210813
  Receipt Date: 20210813
  Transmission Date: 20211014
  Serious: Yes (Other)
  Sender: FDA-Public Use
  Company Number: CN-PFIZER INC-202101015346

PATIENT
  Age: 50 Year
  Sex: Female
  Weight: 61 kg

DRUGS (2)
  1. DIFLUCAN [Suspect]
     Active Substance: FLUCONAZOLE
     Indication: PNEUMONIA
     Dosage: 400 MG, 1X/DAY
     Route: 041
     Dates: start: 20210723, end: 20210730
  2. MOXIFLOXACIN HYDROCHLORIDE AND SODIUM CHLORIDE [Suspect]
     Active Substance: MOXIFLOXACIN HYDROCHLORIDE
     Indication: PNEUMONIA
     Dosage: 400 MG, 1X/DAY
     Route: 041
     Dates: start: 20210727, end: 20210730

REACTIONS (2)
  - Restlessness [Recovering/Resolving]
  - Delirium [Recovering/Resolving]

NARRATIVE: CASE EVENT DATE: 20210727
